FAERS Safety Report 9474639 (Version 6)
Quarter: 2013Q4

REPORT INFORMATION
  Report Type: Report from Study
  Country: US (occurrence: US)
  Receive Date: 20130823
  Receipt Date: 20131022
  Transmission Date: 20140711
  Serious: Yes (Other)
  Sender: FDA-Public Use
  Company Number: US-ALEXION-A201301678

PATIENT
  Sex: 0

DRUGS (5)
  1. SOLIRIS [Suspect]
     Indication: PAROXYSMAL NOCTURNAL HAEMOGLOBINURIA
     Dosage: 1200 MG, Q2W
     Route: 042
     Dates: start: 20111130
  2. SOLIRIS [Suspect]
     Dosage: 600 MG, UNK
     Route: 042
     Dates: start: 20130904, end: 20130904
  3. NORVASC [Concomitant]
     Dosage: 10 MG, QD
     Route: 048
  4. ZOLOFT [Concomitant]
     Dosage: 50 MG, QD
     Route: 048
  5. HEPARIN [Concomitant]
     Dosage: 10 UNIT/ML; 5 ML, PRN, HEPARIN LOCK FUSH

REACTIONS (4)
  - Myelodysplastic syndrome [Not Recovered/Not Resolved]
  - Gastroenteritis viral [Unknown]
  - Platelet count decreased [Not Recovered/Not Resolved]
  - Incorrect dose administered [Unknown]
